FAERS Safety Report 13899186 (Version 2)
Quarter: 2017Q4

REPORT INFORMATION
  Report Type: Spontaneous
  Country: US (occurrence: US)
  Receive Date: 20170823
  Receipt Date: 20171107
  Transmission Date: 20180320
  Serious: No
  Sender: FDA-Public Use
  Company Number: US-JAZZ-2017-US-007724

PATIENT
  Age: 39 Year
  Sex: Female

DRUGS (16)
  1. XYREM [Suspect]
     Active Substance: SODIUM OXYBATE
     Dosage: 2.25 G, BID
     Route: 048
     Dates: start: 201408, end: 201408
  2. AMBIEN [Concomitant]
     Active Substance: ZOLPIDEM TARTRATE
  3. EXCEDRIN MIGRAINE [Concomitant]
     Active Substance: ACETAMINOPHEN\ASPIRIN\CAFFEINE
  4. XYREM [Suspect]
     Active Substance: SODIUM OXYBATE
     Indication: NARCOLEPSY
     Dosage: 2.5G, BID
     Route: 048
     Dates: start: 200808, end: 200809
  5. AMITRIPTYLINE HCL [Concomitant]
     Active Substance: AMITRIPTYLINE
  6. RANITIDINE. [Concomitant]
     Active Substance: RANITIDINE
  7. FOLIC ACID. [Concomitant]
     Active Substance: FOLIC ACID
  8. XYREM [Suspect]
     Active Substance: SODIUM OXYBATE
     Dosage: DOSE ADJUSTMENTS
     Dates: start: 201408, end: 201705
  9. DAYTIME COUGH + COLD [Concomitant]
  10. TOPAMAX [Concomitant]
     Active Substance: TOPIRAMATE
  11. TYSABRI [Concomitant]
     Active Substance: NATALIZUMAB
  12. XYREM [Suspect]
     Active Substance: SODIUM OXYBATE
     Dosage: 4.5 G, BID
     Route: 048
     Dates: start: 2017
  13. XYREM [Suspect]
     Active Substance: SODIUM OXYBATE
     Dosage: 5 G, BID
     Route: 048
     Dates: start: 200901, end: 200905
  14. MODAFINIL. [Concomitant]
     Active Substance: MODAFINIL
  15. XYREM [Suspect]
     Active Substance: SODIUM OXYBATE
     Dosage: 3.5 G, TID
     Route: 048
     Dates: start: 201705, end: 2017
  16. XYREM [Suspect]
     Active Substance: SODIUM OXYBATE
     Indication: CATAPLEXY
     Dosage: DOSE ADJUSTMENTS
     Route: 048
     Dates: start: 200809, end: 200901

REACTIONS (1)
  - Enuresis [Not Recovered/Not Resolved]

NARRATIVE: CASE EVENT DATE: 201705
